FAERS Safety Report 7948388-9 (Version None)
Quarter: 2011Q4

REPORT INFORMATION
  Report Type: 
  Country: None (occurrence: None)
  Receive Date: 20111123
  Receipt Date: 20111110
  Transmission Date: 20120403
  Serious: Yes (Other)
  Sender: FDA-Public Use
  Company Number: DSU-2011-08417

PATIENT
  Age: 22 Year
  Sex: Female

DRUGS (5)
  1. MICROGYNON 30 (ETHINYLESTRADIOL, LEVONORGESTREL) (ETHINYLESTRADIOL, LE [Suspect]
     Indication: ORAL CONTRACEPTION
     Dates: start: 20090920
  2. ATORVASTATINE (ATORVASTATIN) (ATORVASTATIN) [Concomitant]
  3. COLESEVELAM (COLESEVELAM) (625 MILLIGRAM, TABLET) (COLESEVELAN) [Suspect]
     Indication: PRODUCT USED FOR UNKNOWN INDICATION
     Dosage: 3750 MG, PER ORAL ; 3125 MG,PER ORAL
     Route: 048
     Dates: start: 20090920
  4. COLESEVELAM (COLESEVELAM) (625 MILLIGRAM, TABLET) (COLESEVELAN) [Suspect]
     Indication: PRODUCT USED FOR UNKNOWN INDICATION
     Dosage: 3750 MG, PER ORAL ; 3125 MG,PER ORAL
     Route: 048
     Dates: start: 20100101
  5. EZETIMIBE [Concomitant]

REACTIONS (4)
  - MATERNAL EXPOSURE DURING PREGNANCY [None]
  - NAUSEA [None]
  - PREGNANCY ON ORAL CONTRACEPTIVE [None]
  - ABORTION SPONTANEOUS [None]
